FAERS Safety Report 5818294-4 (Version None)
Quarter: 2008Q3

REPORT INFORMATION
  Report Type: 
  Country: None (occurrence: None)
  Receive Date: 20080716
  Receipt Date: 20080708
  Transmission Date: 20090109
  Serious: Yes (Death, Other)
  Sender: FDA-Public Use
  Company Number: 2007-02432

PATIENT
  Age: 55 Year
  Sex: Male
  Weight: 53 kg

DRUGS (21)
  1. VELCADE [Suspect]
     Indication: MULTIPLE MYELOMA
     Dosage: 2 MG, INTRAVENOUS
     Route: 042
     Dates: start: 20061229, end: 20070315
  2. DEXAMETHASONE [Concomitant]
  3. SULFAMETHOXAZOLE AND TRIMETHOPRIM [Concomitant]
  4. FAMOTIDINE [Concomitant]
  5. KALIMATE (CALCIUM POLYSTYRENE SULFONATE) [Concomitant]
  6. ALLOPURINOL [Concomitant]
  7. BIOFERMIN R (STREPTOCOCCUS FAECALIS) [Concomitant]
  8. ROHYPNOL (FLUNITRAZEPAM) [Concomitant]
  9. ZOLPIDEM TARTRATE [Concomitant]
  10. KAMAG G (MAGNESIUM OXIDE) [Concomitant]
  11. PANTOSIN (PANTETHINE) [Concomitant]
  12. PRIMPERAN TAB [Concomitant]
  13. NOVOLIN N [Concomitant]
  14. GASMOTIN (MOSAPRIDE CITRATE) [Concomitant]
  15. LOPERAMIDE HCL [Concomitant]
  16. AMINO ACID GLUCOSE ELECTROLYTE VITAMIN [Concomitant]
  17. LACTEC G (SORBITOL, CALCIUM CHLORIDE ANHYDROUS, SODIUM CHLORIDE, SODIU [Concomitant]
  18. INTRALIPOS 10 (SOYA OIL) [Concomitant]
  19. VITAMEDIN [Concomitant]
  20. SOLITA-T NO. 1 [Concomitant]
  21. ACYCLOVIR [Concomitant]

REACTIONS (14)
  - ANAEMIA [None]
  - ANOREXIA [None]
  - BLOOD CALCIUM INCREASED [None]
  - BLOOD CREATININE INCREASED [None]
  - BLOOD LACTATE DEHYDROGENASE INCREASED [None]
  - DIARRHOEA [None]
  - DISEASE PROGRESSION [None]
  - ERYTHROBLAST COUNT INCREASED [None]
  - HERPES ZOSTER [None]
  - NAUSEA [None]
  - PLASMA CELLS PRESENT [None]
  - PLATELET COUNT DECREASED [None]
  - PYREXIA [None]
  - WHITE BLOOD CELL COUNT DECREASED [None]
